FAERS Safety Report 14852096 (Version 3)
Quarter: 2018Q2

REPORT INFORMATION
  Report Type: Spontaneous
  Country: FR (occurrence: FR)
  Receive Date: 20180507
  Receipt Date: 20180517
  Transmission Date: 20180711
  Serious: Yes (Life-Threatening, Hospitalization, Other)
  Sender: FDA-Public Use
  Company Number: FR-AUROBINDO-AUR-APL-2018-010877

PATIENT

DRUGS (7)
  1. CYAMEMAZINE [Suspect]
     Active Substance: CYAMEMAZINE
     Indication: PRODUCT USED FOR UNKNOWN INDICATION
     Route: 064
  2. HALOPERIDOL. [Concomitant]
     Active Substance: HALOPERIDOL
     Indication: SCHIZOPHRENIA
     Route: 065
  3. OLANZAPINE. [Suspect]
     Active Substance: OLANZAPINE
     Indication: PSYCHOTIC DISORDER
     Route: 064
  4. VENLAFAXINE [Suspect]
     Active Substance: VENLAFAXINE HYDROCHLORIDE
     Indication: PRODUCT USED FOR UNKNOWN INDICATION
     Route: 064
  5. CLOMIPRAMINE [Suspect]
     Active Substance: CLOMIPRAMINE
     Indication: PRODUCT USED FOR UNKNOWN INDICATION
     Route: 064
  6. LORMETAZEPAM [Suspect]
     Active Substance: LORMETAZEPAM
     Route: 064
  7. DIAZEPAM. [Suspect]
     Active Substance: DIAZEPAM
     Indication: PRODUCT USED FOR UNKNOWN INDICATION
     Route: 064

REACTIONS (8)
  - Tremor neonatal [Recovered/Resolved]
  - Neonatal respiratory distress [Recovered/Resolved]
  - Coma neonatal [Recovered/Resolved]
  - Hypotonia neonatal [Recovered/Resolved]
  - Foetal exposure during pregnancy [Unknown]
  - Eating disorder [Recovered/Resolved]
  - Foetal arrhythmia [Recovered/Resolved]
  - Hypoglycaemia neonatal [Recovered/Resolved]
